FAERS Safety Report 21262028 (Version 1)
Quarter: 2022Q3

REPORT INFORMATION
  Report Type: Spontaneous
  Country: CN (occurrence: CN)
  Receive Date: 20220827
  Receipt Date: 20220827
  Transmission Date: 20221027
  Serious: Yes (Hospitalization, Other)
  Sender: FDA-Public Use
  Company Number: None

PATIENT
  Age: 75 Year
  Sex: Male

DRUGS (3)
  1. MANNITOL [Suspect]
     Active Substance: MANNITOL
     Indication: Reduction of increased intracranial pressure
     Dosage: 125 ML, 3 TIMES A DAY
     Route: 041
     Dates: start: 20220801, end: 20220810
  2. MANNITOL [Suspect]
     Active Substance: MANNITOL
     Indication: Diuretic therapy
  3. MANNITOL [Suspect]
     Active Substance: MANNITOL
     Indication: Haemorrhage intracranial

REACTIONS (2)
  - Renal impairment [Recovering/Resolving]
  - Blood creatinine increased [Recovering/Resolving]

NARRATIVE: CASE EVENT DATE: 20220810
